FAERS Safety Report 17296309 (Version 1)
Quarter: 2020Q1

REPORT INFORMATION
  Report Type: Other
  Country: NZ (occurrence: NZ)
  Receive Date: 20200121
  Receipt Date: 20200121
  Transmission Date: 20200409
  Serious: Yes (Other)
  Sender: FDA-Public Use
  Company Number: NZ-APOTEX-2020AP006538

PATIENT
  Age: 78 Year
  Sex: Male

DRUGS (5)
  1. TRISULFAMINIC [Suspect]
     Active Substance: PHENIRAMINE MALEATE\PHENYLPROPANOLAMINE HYDROCHLORIDE\PYRILAMINE MALEATE\SULFADIAZINE\SULFAMERAZINE\SULFAMETHAZINE
     Indication: PRODUCT USED FOR UNKNOWN INDICATION
     Dosage: UNK
     Route: 048
  2. ASPIRIN                            /00002701/ [Concomitant]
     Active Substance: ASPIRIN
     Indication: PRODUCT USED FOR UNKNOWN INDICATION
     Dosage: UNK
     Route: 048
  3. QUINAPRIL. [Concomitant]
     Active Substance: QUINAPRIL
     Indication: PRODUCT USED FOR UNKNOWN INDICATION
     Dosage: UNK
     Route: 048
  4. AMITRIPTYLINE [Concomitant]
     Active Substance: AMITRIPTYLINE
     Indication: PRODUCT USED FOR UNKNOWN INDICATION
     Dosage: UNK
     Route: 048
  5. ALLOPURINOL. [Suspect]
     Active Substance: ALLOPURINOL
     Indication: PRODUCT USED FOR UNKNOWN INDICATION
     Dosage: UNK
     Route: 048

REACTIONS (4)
  - Pyrexia [Unknown]
  - Abnormal behaviour [Unknown]
  - Confusional state [Unknown]
  - Acute generalised exanthematous pustulosis [Unknown]
